FAERS Safety Report 23053499 (Version 1)
Quarter: 2023Q4

REPORT INFORMATION
  Report Type: Spontaneous
  Country: IT (occurrence: IT)
  Receive Date: 20231011
  Receipt Date: 20231011
  Transmission Date: 20240109
  Serious: Yes (Hospitalization, Other)
  Sender: FDA-Public Use
  Company Number: IT-SPC-000318

PATIENT
  Age: 34 Year
  Sex: Male

DRUGS (2)
  1. CLINDAMYCIN [Suspect]
     Active Substance: CLINDAMYCIN
     Indication: Streptococcal sepsis
     Route: 042
  2. PENICILLIN G [Suspect]
     Active Substance: PENICILLIN G
     Indication: Streptococcal sepsis
     Dosage: 4 MUI EVERY 4 H
     Route: 042

REACTIONS (5)
  - Condition aggravated [Recovered/Resolved]
  - Proctitis [Recovered/Resolved]
  - Eye infection bacterial [Recovered/Resolved]
  - Conjunctival hyperaemia [Recovered/Resolved]
  - Product use in unapproved indication [Unknown]
